FAERS Safety Report 6020315-3 (Version None)
Quarter: 2008Q4

REPORT INFORMATION
  Report Type: 
  Country: None (occurrence: None)
  Receive Date: 20081223
  Receipt Date: 20081223
  Transmission Date: 20090506
  Serious: Yes (Other)
  Sender: FDA-Public Use
  Company Number: None

PATIENT
  Age: 7 Year
  Sex: Male
  Weight: 26.3086 kg

DRUGS (1)
  1. AMOXICILLIN + CLAVULANATE POTASSIUM [Suspect]

REACTIONS (7)
  - ASTHENIA [None]
  - COUGH [None]
  - FLATULENCE [None]
  - INCREASED UPPER AIRWAY SECRETION [None]
  - NASAL DISORDER [None]
  - RASH [None]
  - WHEEZING [None]
